FAERS Safety Report 8343931-2 (Version None)
Quarter: 2012Q2

REPORT INFORMATION
  Report Type: 
  Country: None (occurrence: None)
  Receive Date: 20120504
  Receipt Date: 20120423
  Transmission Date: 20120825
  Serious: Yes (Life-Threatening, Hospitalization)
  Sender: FDA-Public Use
  Company Number: 132527-1

PATIENT
  Age: 67 Year
  Sex: Male
  Weight: 67 kg

DRUGS (1)
  1. LEUCOVORIN CALCIUM [Suspect]
     Indication: OESOPHAGEAL CARCINOMA
     Dosage: 400 MGM2 IV ON DAY 1 EVERY 14 DAYS
     Route: 042
     Dates: start: 20120327

REACTIONS (2)
  - NO THERAPEUTIC RESPONSE [None]
  - ATRIAL FIBRILLATION [None]
